FAERS Safety Report 13254165 (Version 2)
Quarter: 2017Q1

REPORT INFORMATION
  Report Type: Report from Study
  Country: US (occurrence: US)
  Receive Date: 20170221
  Receipt Date: 20170308
  Transmission Date: 20170428
  Serious: No
  Sender: FDA-Public Use
  Company Number: US-AMGEN-USASL2017026553

PATIENT
  Age: 74 Year
  Sex: Female

DRUGS (1)
  1. ENBREL [Suspect]
     Active Substance: ETANERCEPT
     Indication: RHEUMATOID ARTHRITIS
     Dosage: 50 MG, QWK
     Route: 065

REACTIONS (6)
  - Nasopharyngitis [Unknown]
  - Local swelling [Recovering/Resolving]
  - Arthropod bite [Recovering/Resolving]
  - Pain [Recovering/Resolving]
  - Pyrexia [Recovering/Resolving]
  - Mass [Recovering/Resolving]
